FAERS Safety Report 10258525 (Version 1)
Quarter: 2014Q2

REPORT INFORMATION
  Report Type: Spontaneous
  Country: IT (occurrence: IT)
  Receive Date: 20140625
  Receipt Date: 20140625
  Transmission Date: 20141212
  Serious: Yes (Other)
  Sender: FDA-Public Use
  Company Number: IT-MYLANLABS-2014S1014170

PATIENT
  Age: 75 Year
  Sex: Female

DRUGS (3)
  1. METFORMIN [Suspect]
     Indication: DIABETES MELLITUS
     Dosage: 2000 MG DAILY
     Route: 048
     Dates: start: 20130101, end: 20140129
  2. HUMALOG [Suspect]
     Indication: DIABETES MELLITUS
     Dosage: 1 DF DAILY
     Route: 058
     Dates: start: 20130101, end: 20140129
  3. LANTUS [Suspect]
     Indication: DIABETES MELLITUS
     Dosage: 1 DF DAILY
     Route: 058
     Dates: start: 20130101, end: 20140129

REACTIONS (3)
  - Loss of consciousness [Recovering/Resolving]
  - Hypoglycaemia [Recovering/Resolving]
  - Hyperhidrosis [Recovering/Resolving]
